FAERS Safety Report 17751691 (Version 2)
Quarter: 2020Q2

REPORT INFORMATION
  Report Type: Spontaneous
  Country: CO (occurrence: CO)
  Receive Date: 20200506
  Receipt Date: 20200521
  Transmission Date: 20200714
  Serious: Yes (Other)
  Sender: FDA-Public Use
  Company Number: CO-SHIRE-CO202015446

PATIENT

DRUGS (2)
  1. ADVATE [Suspect]
     Active Substance: ANTIHEMOPHILIC FACTOR, HUMAN RECOMBINANT
     Indication: FACTOR VIII DEFICIENCY
     Dosage: 250 INTERNATIONAL UNIT, 3X/DAY:TID
     Route: 042
  2. XYNTHA [Concomitant]
     Active Substance: ANTIHEMOPHILIC FACTOR, HUMAN RECOMBINANT RESIDUES 743-1636 DELETED
     Indication: PRODUCT USED FOR UNKNOWN INDICATION

REACTIONS (11)
  - Oedema [Unknown]
  - Lip oedema [Unknown]
  - Haemorrhage [Unknown]
  - Lip haemorrhage [Unknown]
  - Heat illness [Unknown]
  - Traumatic haematoma [Recovered/Resolved]
  - Joint injury [Unknown]
  - Lip haematoma [Unknown]
  - Ecchymosis [Unknown]
  - Induration [Unknown]
  - Lip injury [Unknown]

NARRATIVE: CASE EVENT DATE: 20200411
